FAERS Safety Report 11995605 (Version 6)
Quarter: 2019Q4

REPORT INFORMATION
  Report Type: Report from Study
  Country: GB (occurrence: GB)
  Receive Date: 20160203
  Receipt Date: 20191126
  Transmission Date: 20200122
  Serious: Yes (Hospitalization, Other)
  Sender: FDA-Public Use
  Company Number: GB-SA-2016SA015923

PATIENT
  Age: 55 Year
  Sex: Male
  Weight: 61.5 kg

DRUGS (10)
  1. CEFALEXIN [Concomitant]
     Active Substance: CEPHALEXIN
     Indication: DRUG THERAPY
     Dosage: 250 MG,QD
     Route: 048
  2. ACICLOVIR [Concomitant]
     Active Substance: ACYCLOVIR
     Indication: PROPHYLAXIS
     Dosage: 400 MG,QD
     Route: 048
     Dates: start: 20160111
  3. CHLORPHENAMINE [Concomitant]
     Active Substance: CHLORPHENIRAMINE MALEATE
     Indication: PROPHYLAXIS
     Dosage: 10 MG,QD
     Route: 042
     Dates: start: 20160111, end: 20160115
  4. PARACETAMOL [Concomitant]
     Active Substance: ACETAMINOPHEN
     Indication: PROPHYLAXIS
     Dosage: 1 G,QD
     Route: 042
     Dates: start: 20160111, end: 20160115
  5. BACLOFEN. [Concomitant]
     Active Substance: BACLOFEN
     Indication: DRUG THERAPY
     Dosage: 40 MG,QD
     Route: 048
  6. LANSOPRAZOLE. [Concomitant]
     Active Substance: LANSOPRAZOLE
     Indication: PROPHYLAXIS
     Dosage: 15 MG,QD
     Route: 048
     Dates: start: 20160111, end: 20160115
  7. ALEMTUZUMAB [Suspect]
     Active Substance: ALEMTUZUMAB
     Indication: MULTIPLE SCLEROSIS RELAPSE
     Dosage: 12 MG,QD
     Route: 041
     Dates: start: 20160111, end: 20160115
  8. FAMPRIDINE [Concomitant]
     Active Substance: DALFAMPRIDINE
     Indication: DRUG THERAPY
     Dosage: 20 MG,QD
     Route: 048
     Dates: start: 201410
  9. COLECALCIFEROL [Concomitant]
     Active Substance: CHOLECALCIFEROL
     Indication: DRUG THERAPY
     Dosage: 3200 DF,QD
     Route: 048
  10. METHYLPREDNISOLONE. [Concomitant]
     Active Substance: METHYLPREDNISOLONE
     Indication: PROPHYLAXIS
     Dosage: 1 G,QD
     Route: 042
     Dates: start: 20160111, end: 20160115

REACTIONS (7)
  - Osteoporosis [Not Recovered/Not Resolved]
  - Urinary tract infection [Recovered/Resolved]
  - Colitis [Recovered/Resolved]
  - Kidney infection [Recovered/Resolved]
  - Rash [Recovered/Resolved]
  - Urinary tract infection [Recovered/Resolved]
  - Hepatitis [Recovered/Resolved]

NARRATIVE: CASE EVENT DATE: 20160111
